FAERS Safety Report 19908061 (Version 1)
Quarter: 2021Q3

REPORT INFORMATION
  Report Type: Spontaneous
  Country: US (occurrence: US)
  Receive Date: 20210930
  Receipt Date: 20210930
  Transmission Date: 20211014
  Serious: Yes (Hospitalization)
  Sender: FDA-Public Use
  Company Number: US-BIOGEN-2021BI01052385

PATIENT
  Sex: Male

DRUGS (1)
  1. TYSABRI [Suspect]
     Active Substance: NATALIZUMAB
     Indication: MULTIPLE SCLEROSIS
     Route: 065

REACTIONS (6)
  - Multiple sclerosis [Unknown]
  - Amnesia [Unknown]
  - Relapsing-remitting multiple sclerosis [Unknown]
  - Multiple sclerosis relapse [Unknown]
  - Drug specific antibody present [Unknown]
  - Vitamin D decreased [Unknown]
